FAERS Safety Report 21912775 (Version 2)
Quarter: 2023Q1

REPORT INFORMATION
  Report Type: Spontaneous
  Country: US (occurrence: US)
  Receive Date: 20230125
  Receipt Date: 20230322
  Transmission Date: 20230417
  Serious: No
  Sender: FDA-Public Use
  Company Number: US-ALLERGAN-2241713US

PATIENT
  Age: 41 Year
  Sex: Male

DRUGS (4)
  1. BOTOX COSMETIC [Suspect]
     Active Substance: ONABOTULINUMTOXINA
     Indication: Skin wrinkling
     Dosage: 32 UNITS, SINGLE
     Route: 030
     Dates: start: 20221215, end: 20221215
  2. BOTOX COSMETIC [Suspect]
     Active Substance: ONABOTULINUMTOXINA
     Indication: Skin wrinkling
     Dosage: 44 UNITS, SINGLE
     Route: 030
     Dates: start: 20221130, end: 20221130
  3. BOTOX COSMETIC [Suspect]
     Active Substance: ONABOTULINUMTOXINA
     Indication: Skin wrinkling
     Dosage: UNK, SINGLE
     Route: 030
  4. DYSPORT [Concomitant]
     Active Substance: ABOBOTULINUMTOXINA
     Dates: start: 2021, end: 2021

REACTIONS (1)
  - Drug ineffective [Unknown]

NARRATIVE: CASE EVENT DATE: 20221130
